FAERS Safety Report 10034957 (Version 1)
Quarter: 2014Q1

REPORT INFORMATION
  Report Type: Spontaneous
  Country: US (occurrence: None)
  Receive Date: 20140306
  Receipt Date: 20140306
  Transmission Date: 20141002
  Serious: Yes (Disabling, Other)
  Sender: FDA-Public Use
  Company Number: 163-21880-13032187

PATIENT
  Age: 61 Year
  Sex: Male

DRUGS (6)
  1. REVLIMID (LENALIDOMIDE) (10 MILLIGRAM, CAPSULES) [Suspect]
     Indication: PLASMA CELL MYELOMA
     Dosage: 10 MG,  28 IN 28 D, PO
     Route: 048
     Dates: start: 20111215
  2. DIOVAN(VALSARTAN) [Concomitant]
  3. ACYCLOVIR [Concomitant]
  4. ZEGERID (OMEPRAZOLE) [Concomitant]
  5. URSODIL (URSODEOXYCHOLIC ACID) [Concomitant]
  6. ZOMETA (ZOLEDRONICA ACID) [Concomitant]

REACTIONS (2)
  - Thrombocytopenia [None]
  - Neutropenia [None]
